FAERS Safety Report 17249788 (Version 1)
Quarter: 2020Q1

REPORT INFORMATION
  Report Type: Spontaneous
  Country: IT (occurrence: IT)
  Receive Date: 20200109
  Receipt Date: 20200109
  Transmission Date: 20200409
  Serious: Yes (Other)
  Sender: FDA-Public Use
  Company Number: IT-AUROBINDO-AUR-APL-2020-000946

PATIENT
  Age: 50 Year
  Sex: Female

DRUGS (2)
  1. AMOXICILLIN. [Suspect]
     Active Substance: AMOXICILLIN
     Indication: ANTIBIOTIC THERAPY
     Dosage: 1 GRAM, TOTAL
     Route: 048
     Dates: start: 20191127, end: 20191127
  2. TACHIFLUDEC [Suspect]
     Active Substance: ACETAMINOPHEN\ASCORBIC ACID\PHENYLEPHRINE
     Indication: INFLUENZA
     Dosage: 1 DOSAGE FORM, TOTAL
     Route: 048
     Dates: start: 20191127, end: 20191127

REACTIONS (3)
  - Skin discolouration [Recovering/Resolving]
  - Urticaria [Recovering/Resolving]
  - Pruritus [Recovering/Resolving]

NARRATIVE: CASE EVENT DATE: 20191127
